FAERS Safety Report 7731196-1 (Version None)
Quarter: 2011Q3

REPORT INFORMATION
  Report Type: 
  Country: None (occurrence: None)
  Receive Date: 20110906
  Receipt Date: 20110830
  Transmission Date: 20111222
  Serious: Yes (Other)
  Sender: FDA-Public Use
  Company Number: PHHY2011FR78096

PATIENT
  Age: 31 Year

DRUGS (19)
  1. MECHLORETHAMINE [Suspect]
     Dosage: EIGHT CYCLES
  2. ADRIAMYCIN PFS [Suspect]
     Dosage: THREE CYCLES
  3. NAVELBINE [Suspect]
     Dosage: ONE CYCLE
  4. DACARBAZINE [Suspect]
     Dosage: SIX CYCLES
  5. CYTARABINE [Suspect]
     Dosage: ONE CYCLE
  6. PROCARBAZINE HYDROCHLORIDE [Suspect]
     Dosage: UNK UKN, UNK
  7. VINDESINE [Suspect]
     Dosage: SIX CYCLES
  8. MITOGUAZONE [Suspect]
     Dosage: ONE CYCLE
  9. MELPHALAN [Suspect]
     Dosage: TWO CYCLES
  10. ETOPOSIDE [Suspect]
     Dosage: THREE CYCLES
  11. VINCRISTINE [Suspect]
     Dosage: EIGHT CYCLES
  12. VINDESINE [Suspect]
     Dosage: THREE CYCLES
  13. REVLIMID [Suspect]
     Dosage: TWO CYCLES
  14. ETOPOSIDE [Suspect]
     Dosage: ONE CYCLE
  15. IFOSFAMIDE [Suspect]
     Dosage: ONE CYCLE
  16. PREDNISONE [Suspect]
     Dosage: EIGHT CYCLES
  17. ADRIAMYCIN PFS [Suspect]
     Dosage: SIX CYCLES
  18. METHYLPREDNISOLONE [Suspect]
     Dosage: THREE CYCLES
  19. BLEOMYCIN SULFATE [Suspect]
     Dosage: SIX CYCLES

REACTIONS (4)
  - HODGKIN'S DISEASE RECURRENT [None]
  - THROMBOCYTOPENIA [None]
  - NEUTROPENIA [None]
  - ANAEMIA [None]
